FAERS Safety Report 18962242 (Version 1)
Quarter: 2021Q1

REPORT INFORMATION
  Report Type: Spontaneous
  Country: US (occurrence: US)
  Receive Date: 20210302
  Receipt Date: 20210302
  Transmission Date: 20210420
  Serious: Yes (Life-Threatening, Hospitalization, Disabling, Other)
  Sender: FDA-Public Use
  Company Number: None

PATIENT
  Age: 31 Year
  Sex: Female
  Weight: 90 kg

DRUGS (13)
  1. KLONOPIN [Concomitant]
     Active Substance: CLONAZEPAM
  2. PROVIGIL [Concomitant]
     Active Substance: MODAFINIL
  3. VITAMIN D [Concomitant]
     Active Substance: VITAMIN D NOS
  4. ALBUTEROL INHALER [Concomitant]
     Active Substance: ALBUTEROL
  5. IMETHYLFOLATE [Concomitant]
  6. TYLENOL [Concomitant]
     Active Substance: ACETAMINOPHEN
  7. COENZYME Q10 [Concomitant]
     Active Substance: DIETARY SUPPLEMENT\UBIDECARENONE
  8. NURTEC ODT [Concomitant]
     Active Substance: RIMEGEPANT SULFATE
  9. MONTELUKAST [Suspect]
     Active Substance: MONTELUKAST SODIUM
     Indication: MULTIPLE ALLERGIES
     Dosage: ?          QUANTITY:1 TABLET(S);?
     Route: 048
     Dates: start: 20200515, end: 20210218
  10. MONTELUKAST [Suspect]
     Active Substance: MONTELUKAST SODIUM
     Indication: ASTHMA
     Dosage: ?          QUANTITY:1 TABLET(S);?
     Route: 048
     Dates: start: 20200515, end: 20210218
  11. TRAZODONE [Concomitant]
     Active Substance: TRAZODONE HYDROCHLORIDE
  12. MAGNESIUM [Concomitant]
     Active Substance: MAGNESIUM
  13. ZYRTEC [Concomitant]
     Active Substance: CETIRIZINE HYDROCHLORIDE

REACTIONS (15)
  - Tic [None]
  - Anxiety [None]
  - Hunger [None]
  - Narcolepsy [None]
  - Cerebrovascular accident [None]
  - Seizure [None]
  - Migraine [None]
  - Lethargy [None]
  - Photosensitivity reaction [None]
  - Transient ischaemic attack [None]
  - Tremor [None]
  - Agitation [None]
  - Mood swings [None]
  - Stress [None]
  - Cataplexy [None]

NARRATIVE: CASE EVENT DATE: 20201103
